FAERS Safety Report 8202885-X (Version None)
Quarter: 2012Q1

REPORT INFORMATION
  Report Type: 
  Country: None (occurrence: None)
  Receive Date: 20120312
  Receipt Date: 20120312
  Transmission Date: 20120608
  Serious: Yes (Life-Threatening, Hospitalization, Disabling, Congenital Anomaly, Other)
  Sender: FDA-Public Use
  Company Number: None

PATIENT
  Age: 91 Year
  Sex: Female
  Weight: 58.967 kg

DRUGS (1)
  1. ARICEPT [Suspect]
     Indication: DEMENTIA
     Dosage: 2 PILLS
     Dates: start: 20111215, end: 20111219

REACTIONS (7)
  - ABASIA [None]
  - INCONTINENCE [None]
  - HALLUCINATION [None]
  - ACTIVITIES OF DAILY LIVING IMPAIRED [None]
  - ABNORMAL DREAMS [None]
  - MUSCLE SPASMS [None]
  - TREMOR [None]
